FAERS Safety Report 5930940-3 (Version None)
Quarter: 2008Q4

REPORT INFORMATION
  Report Type: 
  Country: None (occurrence: None)
  Receive Date: 20081027
  Receipt Date: 20081016
  Transmission Date: 20090506
  Serious: Yes (Other)
  Sender: FDA-Public Use
  Company Number: JP-AMGEN-US314617

PATIENT
  Age: 52 Year
  Sex: Male

DRUGS (2)
  1. ENBREL [Suspect]
     Indication: RHEUMATOID ARTHRITIS
     Dosage: UNSPECIFIED
     Route: 058
  2. ENBREL [Suspect]
     Dosage: UNSPECIFIED
     Route: 058

REACTIONS (2)
  - LEUKOENCEPHALOPATHY [None]
  - NIPPLE OEDEMA [None]
